FAERS Safety Report 9792716 (Version 1)
Quarter: 2014Q1

REPORT INFORMATION
  Report Type: Spontaneous
  Country: US (occurrence: US)
  Receive Date: 20140102
  Receipt Date: 20140102
  Transmission Date: 20141002
  Serious: No
  Sender: FDA-Public Use
  Company Number: US-SA-2013SA109538

PATIENT
  Sex: Female

DRUGS (5)
  1. AUBAGIO [Suspect]
     Indication: MULTIPLE SCLEROSIS
     Route: 048
     Dates: start: 20130624
  2. KLONOPIN [Concomitant]
  3. PROZAC [Concomitant]
  4. ROPINIROLE [Concomitant]
  5. PROPANOLOL [Concomitant]

REACTIONS (3)
  - Decreased appetite [Unknown]
  - Nausea [Unknown]
  - Diarrhoea [Unknown]
